FAERS Safety Report 7129975-7 (Version None)
Quarter: 2010Q4

REPORT INFORMATION
  Report Type: 
  Country: None (occurrence: None)
  Receive Date: 20101130
  Receipt Date: 20101112
  Transmission Date: 20110411
  Serious: Yes (Hospitalization, Other)
  Sender: FDA-Public Use
  Company Number: DE-AMGEN-DEUCT2010005205

PATIENT

DRUGS (2)
  1. ETANERCEPT [Suspect]
     Indication: RHEUMATOID ARTHRITIS
     Dosage: 50 MG, QWK
     Dates: start: 20100720, end: 20100101
  2. ETANERCEPT [Suspect]
     Indication: POLYARTHRITIS

REACTIONS (2)
  - DIARRHOEA [None]
  - RENAL FUNCTION TEST ABNORMAL [None]
